FAERS Safety Report 14229430 (Version 2)
Quarter: 2018Q4

REPORT INFORMATION
  Report Type: Spontaneous
  Country: GB (occurrence: GB)
  Receive Date: 20171128
  Receipt Date: 20181128
  Transmission Date: 20190204
  Serious: Yes (Life-Threatening, Other)
  Sender: FDA-Public Use
  Company Number: GB-ROCHE-2028517

PATIENT
  Age: 59 Year
  Sex: Male

DRUGS (2)
  1. ACTILYSE [Suspect]
     Active Substance: ALTEPLASE
     Indication: PULMONARY EMBOLISM
     Route: 040
  2. ACTILYSE [Suspect]
     Active Substance: ALTEPLASE
     Route: 042

REACTIONS (14)
  - Cardiac arrest [Unknown]
  - Acute kidney injury [Not Recovered/Not Resolved]
  - Respiratory failure [Unknown]
  - Pulmonary haemorrhage [Unknown]
  - Liver injury [Recovered/Resolved]
  - Ventricular tachycardia [Unknown]
  - Pulseless electrical activity [Unknown]
  - Coagulopathy [Unknown]
  - Atrial fibrillation [Unknown]
  - Metabolic acidosis [Unknown]
  - Haemodynamic instability [Recovered/Resolved]
  - Bundle branch block right [Unknown]
  - Acute respiratory distress syndrome [Unknown]
  - Acidosis [Unknown]
